FAERS Safety Report 15397829 (Version 1)
Quarter: 2018Q3

REPORT INFORMATION
  Report Type: Spontaneous
  Country: DE (occurrence: DE)
  Receive Date: 20180918
  Receipt Date: 20180918
  Transmission Date: 20181010
  Serious: Yes (Other)
  Sender: FDA-Public Use
  Company Number: DE-ASTRAZENECA-2018SF17603

PATIENT
  Sex: Male

DRUGS (5)
  1. NOVOPULMON NOVOLIZER [Suspect]
     Active Substance: BUDESONIDE
     Dosage: 2?0?2
     Route: 055
     Dates: start: 20180903
  2. NOVOPULMON NOVOLIZER [Suspect]
     Active Substance: BUDESONIDE
     Dosage: 2?0?2
     Route: 055
     Dates: start: 20180830
  3. BEROTEC [Concomitant]
     Active Substance: FENOTEROL HYDROBROMIDE
     Indication: ASTHMA
     Dosage: 2?0?2
     Route: 055
  4. BEROTEC [Concomitant]
     Active Substance: FENOTEROL HYDROBROMIDE
     Indication: ASTHMA
     Dosage: 2?0?2
     Route: 048
  5. NOVOPULMON NOVOLIZER [Suspect]
     Active Substance: BUDESONIDE
     Dosage: 2?0?2
     Route: 055
     Dates: start: 201808

REACTIONS (4)
  - Malaise [Recovered/Resolved]
  - Fear [Recovered/Resolved]
  - Drug effect variable [Recovered/Resolved]
  - Productive cough [Recovered/Resolved]

NARRATIVE: CASE EVENT DATE: 201808
